FAERS Safety Report 5206509-5 (Version None)
Quarter: 2007Q1

REPORT INFORMATION
  Report Type: 
  Country: None (occurrence: None)
  Receive Date: 20070109
  Receipt Date: 20061229
  Transmission Date: 20070707
  Serious: Yes (Other)
  Sender: FDA-Public Use
  Company Number: 2006107856

PATIENT
  Age: 7 Year
  Weight: 19.1 kg

DRUGS (1)
  1. BENADRYL [Suspect]
     Indication: RHINORRHOEA
     Dosage: 1 STRIP ONCE, ORAL
     Route: 048
     Dates: start: 20060901, end: 20060901

REACTIONS (9)
  - AGEUSIA [None]
  - BUCCAL CAVITY PAPILLOMA [None]
  - ORAL DISCOMFORT [None]
  - ORAL MUCOSAL BLISTERING [None]
  - SCAR [None]
  - SWOLLEN TONGUE [None]
  - THERMAL BURN [None]
  - TONGUE BLISTERING [None]
  - TONGUE DISORDER [None]
